FAERS Safety Report 5512575-X (Version None)
Quarter: 2007Q4

REPORT INFORMATION
  Report Type: 
  Country: None (occurrence: None)
  Receive Date: 20071107
  Receipt Date: 20071022
  Transmission Date: 20080405
  Serious: Yes (Hospitalization)
  Sender: FDA-Public Use
  Company Number: 2007S1010673

PATIENT
  Age: 26 Year
  Sex: Female

DRUGS (2)
  1. OMEPRAZOLE [Suspect]
     Indication: ABDOMINAL PAIN
     Dosage: 20 MG;DAILY;ORAL
     Route: 048
     Dates: start: 20070714, end: 20070829
  2. ESCOPOLAMINE BUTYL BROMIDE (NO PREF. NAME) [Suspect]
     Indication: ABDOMINAL PAIN
     Dosage: 20 MG;AS NEEDED;ORAL
     Route: 048
     Dates: start: 20070714, end: 20070820

REACTIONS (1)
  - HEPATITIS [None]
